FAERS Safety Report 4673442-7 (Version None)
Quarter: 2005Q2

REPORT INFORMATION
  Report Type: 
  Country: None (occurrence: None)
  Receive Date: 20050525
  Receipt Date: 20041203
  Transmission Date: 20051028
  Serious: Yes (Other)
  Sender: FDA-Public Use
  Company Number: GB-GLAXOSMITHKLINE-B0359659A

PATIENT
  Sex: Female

DRUGS (4)
  1. SEROXAT [Suspect]
     Indication: DEPRESSION
     Route: 065
     Dates: start: 19971113, end: 20010101
  2. CO-TRIMOXAZOLE [Concomitant]
  3. EPILIM [Concomitant]
     Dosage: 13TAB PER DAY
     Dates: start: 20000101
  4. ALCOHOL [Concomitant]
     Dates: start: 20000101

REACTIONS (4)
  - COMPLETED SUICIDE [None]
  - ILL-DEFINED DISORDER [None]
  - MULTIPLE DRUG OVERDOSE [None]
  - OVERDOSE [None]
